FAERS Safety Report 22183024 (Version 5)
Quarter: 2023Q4

REPORT INFORMATION
  Report Type: Report from Study
  Country: US (occurrence: US)
  Receive Date: 20230406
  Receipt Date: 20231221
  Transmission Date: 20240110
  Serious: No
  Sender: FDA-Public Use
  Company Number: US-002147023-NVSC2023US078089

PATIENT
  Sex: Female

DRUGS (1)
  1. KESIMPTA [Suspect]
     Active Substance: OFATUMUMAB
     Indication: Product used for unknown indication
     Dosage: UNK
     Route: 065
     Dates: start: 20230401

REACTIONS (7)
  - Influenza like illness [Unknown]
  - Pain [Unknown]
  - Vision blurred [Unknown]
  - Somnolence [Unknown]
  - Brain fog [Unknown]
  - Fatigue [Unknown]
  - Myalgia [Unknown]
